FAERS Safety Report 18168762 (Version 1)
Quarter: 2020Q3

REPORT INFORMATION
  Report Type: Spontaneous
  Country: US (occurrence: US)
  Receive Date: 20200818
  Receipt Date: 20200818
  Transmission Date: 20201103
  Serious: No
  Sender: FDA-Public Use
  Company Number: None

PATIENT
  Age: 65 Year
  Sex: Male

DRUGS (1)
  1. LUPRON DEPOT [Suspect]
     Active Substance: LEUPROLIDE ACETATE
     Indication: PROSTATE CANCER
     Dosage: ?          OTHER FREQUENCY:ONE TIME ONLY;?
     Route: 030
     Dates: start: 20200713

REACTIONS (5)
  - Back pain [None]
  - Urine output decreased [None]
  - Urine flow decreased [None]
  - Bone cancer metastatic [None]
  - Bed bug infestation [None]

NARRATIVE: CASE EVENT DATE: 20200817
